FAERS Safety Report 7586360-1 (Version None)
Quarter: 2011Q2

REPORT INFORMATION
  Report Type: 
  Country: None (occurrence: None)
  Receive Date: 20110624
  Receipt Date: 20110516
  Transmission Date: 20111010
  Serious: Yes (Other)
  Sender: FDA-Public Use
  Company Number: DSA_46956_2011

PATIENT
  Sex: Female

DRUGS (1)
  1. ELIDEL (ELIDEL - PIMECROLIMUS) (NOT SPECIFIED) [Suspect]
     Indication: PRODUCT USED FOR UNKNOWN INDICATION
     Dosage: (DF TOPICAL)
     Route: 061
     Dates: start: 20040101, end: 20040101

REACTIONS (5)
  - NASOPHARYNGITIS [None]
  - OROPHARYNGEAL PAIN [None]
  - DYSPNOEA [None]
  - SENSATION OF FOREIGN BODY [None]
  - LACRIMATION INCREASED [None]
